FAERS Safety Report 4337865-8 (Version None)
Quarter: 2004Q2

REPORT INFORMATION
  Report Type: 
  Country: None (occurrence: None)
  Receive Date: 20040412
  Receipt Date: 20040108
  Transmission Date: 20050107
  Serious: Yes (Other)
  Sender: FDA-Public Use
  Company Number: A03200400039

PATIENT
  Age: 73 Year
  Sex: Female
  Weight: 82.35 kg

DRUGS (2)
  1. ARIXTRA [Suspect]
     Indication: KNEE ARTHROPLASTY
     Dosage: 2.5 MG QD SUBCUTANEOUS
     Route: 058
     Dates: start: 20031209, end: 20031214
  2. ARIXTRA [Suspect]
     Indication: THROMBOSIS PROPHYLAXIS
     Dosage: 2.5 MG QD SUBCUTANEOUS
     Route: 058
     Dates: start: 20031209, end: 20031214

REACTIONS (3)
  - FAECAL OCCULT BLOOD POSITIVE [None]
  - HAEMATOCRIT DECREASED [None]
  - HAEMOGLOBIN DECREASED [None]
